FAERS Safety Report 8135090-6 (Version None)
Quarter: 2012Q1

REPORT INFORMATION
  Report Type: 
  Country: None (occurrence: None)
  Receive Date: 20120214
  Receipt Date: 20120202
  Transmission Date: 20120608
  Serious: Yes (Hospitalization, Disabling, Other)
  Sender: FDA-Public Use
  Company Number: US-ELI_LILLY_AND_COMPANY-US201202001537

PATIENT
  Sex: Male

DRUGS (6)
  1. HUMULIN N [Suspect]
     Indication: TYPE 2 DIABETES MELLITUS
     Dosage: 60 U, QD
     Route: 065
     Dates: start: 20060101
  2. SYMLIN [Concomitant]
     Dosage: UNK
  3. LANTUS [Concomitant]
     Dosage: UNK
  4. NOVOLOG [Concomitant]
     Dosage: UNK
  5. OTH.DRUGS FOR OBSTRUC.AIRWAY DISEASES,INHALAN [Concomitant]
     Dosage: UNK
  6. HUMULIN N [Suspect]
     Dosage: 60 U, QD
     Route: 065
     Dates: start: 20060101

REACTIONS (14)
  - ASTHMA [None]
  - CARDIAC FAILURE [None]
  - BLISTER [None]
  - IMMUNE SYSTEM DISORDER [None]
  - PULMONARY OEDEMA [None]
  - H1N1 INFLUENZA [None]
  - STAPHYLOCOCCAL INFECTION [None]
  - FEAR [None]
  - CONTUSION [None]
  - PNEUMONIA [None]
  - LIMB INJURY [None]
  - DYSPNOEA [None]
  - DIVERTICULITIS [None]
  - GENERALISED OEDEMA [None]
